FAERS Safety Report 12601864 (Version 3)
Quarter: 2016Q3

REPORT INFORMATION
  Report Type: Report from Study
  Country: US (occurrence: US)
  Receive Date: 20160728
  Receipt Date: 20160922
  Transmission Date: 20161109
  Serious: Yes (Other)
  Sender: FDA-Public Use
  Company Number: US-JNJFOC-20160720912

PATIENT
  Age: 81 Year
  Sex: Male

DRUGS (7)
  1. CHONDROITIN [Concomitant]
     Active Substance: CHONDROITIN
  2. LISINOPRIL. [Concomitant]
     Active Substance: LISINOPRIL
  3. IMBRUVICA [Suspect]
     Active Substance: IBRUTINIB
     Indication: CHRONIC LYMPHOCYTIC LEUKAEMIA
     Route: 048
     Dates: start: 20160528, end: 20160720
  4. GLUCOSAMINE [Concomitant]
     Active Substance: GLUCOSAMINE
  5. CARVEDILOL. [Concomitant]
     Active Substance: CARVEDILOL
  6. LEVOTHYROXINE. [Concomitant]
     Active Substance: LEVOTHYROXINE
  7. MYRBETRIQ [Concomitant]
     Active Substance: MIRABEGRON

REACTIONS (6)
  - Skin irritation [Not Recovered/Not Resolved]
  - Pruritus [Unknown]
  - Thrombosis [Not Recovered/Not Resolved]
  - Rash [Unknown]
  - Arthralgia [Not Recovered/Not Resolved]
  - Muscle contractions involuntary [Unknown]

NARRATIVE: CASE EVENT DATE: 2016
